FAERS Safety Report 7711041-0 (Version None)
Quarter: 2011Q3

REPORT INFORMATION
  Report Type: 
  Country: None (occurrence: None)
  Receive Date: 20110825
  Receipt Date: 20110818
  Transmission Date: 20111222
  Serious: Yes (Hospitalization, Other)
  Sender: FDA-Public Use
  Company Number: NL-AMGEN-NLDSP2011036594

PATIENT
  Age: 56 Year
  Sex: Female
  Weight: 83 kg

DRUGS (10)
  1. IRBESARTAN [Concomitant]
     Indication: ARTERIAL DISORDER
  2. METHOTREXATE SODIUM [Concomitant]
     Indication: RHEUMATOID ARTHRITIS
     Dosage: 5 MG, UNK
     Dates: end: 20110713
  3. ACENOCOUMAROL [Concomitant]
     Indication: ATRIAL FIBRILLATION
     Dosage: 1 MG, UNK
     Dates: start: 20050101
  4. THYRAX                             /00068001/ [Concomitant]
     Indication: THYROID DISORDER
     Dosage: 0.025 MG, 3X/DAY
  5. ZEBETA [Concomitant]
     Indication: CARDIAC DISORDER
     Dosage: 2.5 UNK, UNK
     Dates: start: 20050101
  6. NEXIUM [Concomitant]
     Indication: PROPHYLAXIS
     Dosage: 40 MG, UNK
  7. CRESTOR [Concomitant]
     Indication: BLOOD CHOLESTEROL
     Dosage: 10 MG, UNK
     Dates: start: 20050101
  8. IRBESARTAN [Concomitant]
     Indication: CARDIAC DISORDER
     Dosage: 150 UNK, UNK
     Dates: start: 20050101
  9. ENBREL [Suspect]
     Indication: RHEUMATOID ARTHRITIS
     Dosage: 50 MG, ONCE PER WEEK
     Dates: start: 20070101, end: 20110713
  10. DICLOFENAC SODIUM [Concomitant]
     Indication: RHEUMATOID ARTHRITIS
     Dosage: 75 MG, 2X/DAY

REACTIONS (1)
  - OVARIAN CANCER [None]
